FAERS Safety Report 12420486 (Version 2)
Quarter: 2016Q3

REPORT INFORMATION
  Report Type: Report from Study
  Country: US (occurrence: US)
  Receive Date: 20160531
  Receipt Date: 20160729
  Transmission Date: 20161109
  Serious: Yes (Hospitalization, Other)
  Sender: FDA-Public Use
  Company Number: US-BAYER-2014-129608

PATIENT
  Age: 80 Year
  Sex: Female

DRUGS (4)
  1. NEXAVAR [Suspect]
     Active Substance: SORAFENIB
     Indication: MALIGNANT CONNECTIVE TISSUE NEOPLASM
     Dosage: 200 MG, QD
     Route: 048
     Dates: start: 20130219
  2. NEXAVAR [Suspect]
     Active Substance: SORAFENIB
     Indication: HEPATOCELLULAR CARCINOMA
  3. NEXAVAR [Suspect]
     Active Substance: SORAFENIB
     Indication: SOFT TISSUE SARCOMA
     Dosage: UNK
     Route: 048
     Dates: start: 20130704
  4. NEXAVAR [Suspect]
     Active Substance: SORAFENIB
     Indication: TRACHEAL CANCER
     Dosage: 200 MG, QD/ 200MG DAILY DOSE
     Route: 048
     Dates: start: 20130904

REACTIONS (12)
  - Haemorrhage [None]
  - Fluid retention [None]
  - Blood test abnormal [Unknown]
  - Fatigue [None]
  - Respiration abnormal [Unknown]
  - Anaemia [None]
  - Mean cell volume decreased [None]
  - Off label use [None]
  - Drug dose omission [None]
  - Drug dose omission [None]
  - Haematocrit decreased [None]
  - Haematochezia [None]

NARRATIVE: CASE EVENT DATE: 20140817
